FAERS Safety Report 14795238 (Version 1)
Quarter: 2018Q2

REPORT INFORMATION
  Report Type: Report from Study
  Country: CA (occurrence: CA)
  Receive Date: 20180423
  Receipt Date: 20180423
  Transmission Date: 20180711
  Serious: Yes (Other)
  Sender: FDA-Public Use
  Company Number: CA-ACTELION-A-US2018-170742

PATIENT
  Age: 65 Year
  Sex: Female

DRUGS (18)
  1. LASIX [Concomitant]
     Active Substance: FUROSEMIDE
  2. FLUOROMETHOLONE. [Concomitant]
     Active Substance: FLUOROMETHOLONE
  3. ROSUVASTATIN. [Concomitant]
     Active Substance: ROSUVASTATIN
  4. GRAVOL [Concomitant]
     Active Substance: DIMENHYDRINATE
  5. WARFARIN [Concomitant]
     Active Substance: WARFARIN
  6. TOUJEO [Concomitant]
     Active Substance: INSULIN GLARGINE
  7. OXYGEN. [Concomitant]
     Active Substance: OXYGEN
     Dosage: 3 L/MIN, UNK
  8. METFORMIN [Concomitant]
     Active Substance: METFORMIN HYDROCHLORIDE
  9. T3 [Concomitant]
     Active Substance: LIOTHYRONINE SODIUM
  10. PULMICORT TURBUHALER [Concomitant]
     Active Substance: BUDESONIDE
  11. PREVACID [Concomitant]
     Active Substance: LANSOPRAZOLE
  12. METOPROLOL. [Concomitant]
     Active Substance: METOPROLOL
  13. TRACLEER [Suspect]
     Active Substance: BOSENTAN
     Indication: PULMONARY ARTERIAL HYPERTENSION
     Dosage: 125 MG, UNK
     Route: 048
     Dates: start: 20161102
  14. NOVORAPID [Concomitant]
     Active Substance: INSULIN ASPART
  15. LEVOTHYROXINE. [Concomitant]
     Active Substance: LEVOTHYROXINE
  16. ALLOPURINOL. [Concomitant]
     Active Substance: ALLOPURINOL
  17. VENTOLIN [Concomitant]
     Active Substance: ALBUTEROL SULFATE
  18. DIAZEPAM. [Concomitant]
     Active Substance: DIAZEPAM

REACTIONS (2)
  - Right ventricular enlargement [Not Recovered/Not Resolved]
  - Dyspnoea exertional [Not Recovered/Not Resolved]
